FAERS Safety Report 7327792-6 (Version None)
Quarter: 2011Q1

REPORT INFORMATION
  Report Type: 
  Country: None (occurrence: None)
  Receive Date: 20110303
  Receipt Date: 20110224
  Transmission Date: 20110831
  Serious: No
  Sender: FDA-Public Use
  Company Number: US-PFIZER INC-2011043155

PATIENT
  Sex: Female

DRUGS (1)
  1. EFFEXOR XR [Suspect]
     Dosage: 150 MG, 1X/DAY

REACTIONS (5)
  - NASOPHARYNGITIS [None]
  - INFLUENZA [None]
  - PYREXIA [None]
  - DRUG INEFFECTIVE [None]
  - FEELING ABNORMAL [None]
